FAERS Safety Report 11552192 (Version 2)
Quarter: 2015Q4

REPORT INFORMATION
  Report Type: Spontaneous
  Country: JP (occurrence: JP)
  Receive Date: 20150925
  Receipt Date: 20151028
  Transmission Date: 20160304
  Serious: Yes (Congenital Anomaly)
  Sender: FDA-Public Use
  Company Number: JP-009507513-1509JPN012741

PATIENT
  Sex: Female

DRUGS (1)
  1. DEXAMETHASONE. [Suspect]
     Active Substance: DEXAMETHASONE
     Indication: ADRENAL ANDROGEN EXCESS
     Dosage: UNKNOWN
     Route: 065

REACTIONS (2)
  - Prader-Willi syndrome [Unknown]
  - Foetal exposure during pregnancy [Unknown]
